FAERS Safety Report 5012747-7 (Version None)
Quarter: 2006Q2

REPORT INFORMATION
  Report Type: 
  Country: None (occurrence: None)
  Receive Date: 20060530
  Receipt Date: 20060112
  Transmission Date: 20061013
  Serious: No
  Sender: FDA-Public Use
  Company Number: US-BRISTOL-MYERS SQUIBB COMPANY-13244934

PATIENT
  Age: 80 Year
  Sex: Female

DRUGS (5)
  1. ERBITUX [Suspect]
     Indication: COLON CANCER
     Route: 042
     Dates: start: 20060109, end: 20060109
  2. CAMPTOSAR [Concomitant]
     Route: 042
     Dates: start: 20060109
  3. ZOFRAN [Concomitant]
     Dates: start: 20060109
  4. DECADRON SRC [Concomitant]
     Route: 042
     Dates: start: 20060109
  5. BENADRYL [Concomitant]
     Route: 042
     Dates: start: 20060109

REACTIONS (3)
  - INCORRECT DRUG ADMINISTRATION DURATION [None]
  - MEDICATION ERROR [None]
  - NO ADVERSE EFFECT [None]
